FAERS Safety Report 4743298-2 (Version None)
Quarter: 2005Q3

REPORT INFORMATION
  Report Type: 
  Country: None (occurrence: None)
  Receive Date: 20050809
  Receipt Date: 20050728
  Transmission Date: 20060218
  Serious: Yes (Other)
  Sender: FDA-Public Use
  Company Number: 2005-07-2180

PATIENT
  Age: 33 Year
  Sex: Male

DRUGS (2)
  1. LORATADINE [Suspect]
     Indication: RHINITIS ALLERGIC
     Dosage: 10MG QD ORAL
     Route: 048
  2. ZIAC [Suspect]
     Indication: HYPERTENSION
     Dosage: 1 TAB ORAL
     Route: 048

REACTIONS (8)
  - BLOOD ALBUMIN INCREASED [None]
  - CHOLESTASIS [None]
  - GRANULOMATOUS LIVER DISEASE [None]
  - HEPATIC NECROSIS [None]
  - HEPATITIS C ANTIBODY POSITIVE [None]
  - HEPATOCELLULAR DAMAGE [None]
  - LIVER TENDERNESS [None]
  - PYREXIA [None]
